FAERS Safety Report 8547940-X (Version None)
Quarter: 2012Q3

REPORT INFORMATION
  Report Type: 
  Country: None (occurrence: None)
  Receive Date: 20120728
  Receipt Date: 20120723
  Transmission Date: 20120928
  Serious: Yes (Other)
  Sender: FDA-Public Use
  Company Number: ES-ABBOTT-11P-144-0850171-00

PATIENT
  Sex: Male
  Weight: 70 kg

DRUGS (2)
  1. HUMIRA [Suspect]
     Indication: PSORIASIS
     Dosage: 1 EVERY 2-3 WEEKS
     Route: 058
     Dates: start: 20081001, end: 20110801
  2. HUMIRA [Suspect]
     Dates: start: 20120101

REACTIONS (1)
  - ANTINUCLEAR ANTIBODY POSITIVE [None]
